FAERS Safety Report 5272218-X (Version None)
Quarter: 2007Q1

REPORT INFORMATION
  Report Type: 
  Country: None (occurrence: None)
  Receive Date: 20070322
  Receipt Date: 20070104
  Transmission Date: 20070707
  Serious: No
  Sender: FDA-Public Use
  Company Number: 2006PV026132

PATIENT
  Age: 56 Year
  Sex: Female
  Weight: 101.8 kg

DRUGS (5)
  1. AVANDARYL [Suspect]
     Dosage: 100MG PER DAY
     Route: 065
     Dates: start: 20060101, end: 20061127
  2. AVANDIA [Suspect]
     Route: 065
  3. ACTOS [Suspect]
     Route: 065
  4. GLIPIZIDE [Suspect]
     Route: 065
  5. BYETTA [Suspect]
     Dosage: 5MCG TWICE PER DAY
     Route: 058
     Dates: start: 20061128

REACTIONS (1)
  - NAUSEA [None]
